FAERS Safety Report 8192100 (Version 2)
Quarter: 2013Q4

REPORT INFORMATION
  Report Type: Spontaneous
  Country: US (occurrence: US)
  Receive Date: 20111020
  Receipt Date: 20131125
  Transmission Date: 20140711
  Serious: Yes (Other)
  Sender: FDA-Public Use
  Company Number: US-ELI_LILLY_AND_COMPANY-US_011075703

PATIENT
  Age: 54 Year
  Sex: Female

DRUGS (4)
  1. HUMULIN NPH [Suspect]
     Indication: DIABETES MELLITUS
     Dosage: UNK UNK, BID
     Route: 058
  2. HUMULIN NPH [Suspect]
     Dosage: UNK UNK, BID
     Route: 058
  3. HUMULIN NPH [Suspect]
     Dosage: UNK UNK, BID
     Route: 058
  4. INSULIN, ANIMAL [Suspect]
     Indication: DIABETES MELLITUS
     Dosage: UNK, UNKNOWN
     Route: 058

REACTIONS (4)
  - Eye haemorrhage [Unknown]
  - Chest pain [Unknown]
  - Visual acuity reduced [Not Recovered/Not Resolved]
  - Asthenopia [Unknown]
